FAERS Safety Report 5864183-9 (Version None)
Quarter: 2008Q3

REPORT INFORMATION
  Report Type: 
  Country: None (occurrence: None)
  Receive Date: 20080829
  Receipt Date: 20080819
  Transmission Date: 20090109
  Serious: Yes (Hospitalization)
  Sender: FDA-Public Use
  Company Number: US-ROCHE-439762

PATIENT
  Sex: Female
  Weight: 63 kg

DRUGS (30)
  1. PEGASYS [Suspect]
     Indication: HEPATITIS C
     Route: 058
     Dates: start: 20050912
  2. PEGASYS [Suspect]
     Route: 058
     Dates: start: 20060217
  3. RIBAVIRIN [Suspect]
     Indication: HEPATITIS C
     Route: 048
     Dates: start: 20050912, end: 20060103
  4. RIBAVIRIN [Suspect]
     Route: 048
     Dates: start: 20060227
  5. RIBAVIRIN [Suspect]
     Route: 048
     Dates: start: 20060227
  6. TACROLIMUS [Suspect]
     Indication: DRUG USE FOR UNKNOWN INDICATION
     Route: 065
     Dates: start: 20051115
  7. BACTRIM [Concomitant]
     Dosage: IN THE AFTERNOON.
     Dates: start: 20051011, end: 20060410
  8. GLIPIZIDE [Concomitant]
     Dates: start: 20050622, end: 20061004
  9. LASIX [Concomitant]
     Dates: start: 20060301, end: 20060301
  10. NORCO [Concomitant]
     Dates: start: 20060228
  11. ULTRAM [Concomitant]
     Dates: start: 20060228
  12. NICOTINE [Concomitant]
     Dates: start: 20060228
  13. GI COCKTAIL [Concomitant]
     Dates: start: 20060227
  14. HYDROCHLOROTHIAZIDE [Concomitant]
     Dates: start: 20060302
  15. INSULIN [Concomitant]
     Dosage: DOSE = SLIDING SCALE
     Dates: start: 20060413
  16. MAGNESIUM OXIDE [Concomitant]
     Dates: start: 20060513
  17. MAGNESIUM SULFATE [Concomitant]
     Dosage: ROUTE = INTRAVENOUS PIGGYBACK
     Route: 042
     Dates: start: 20060513
  18. ONDANSETRON [Concomitant]
     Dosage: ROUTE = INTRAVENOUS PUSH
     Route: 042
     Dates: start: 20060513
  19. TRAMADOL HCL [Concomitant]
     Route: 048
     Dates: start: 20060514
  20. ZOSYN [Concomitant]
     Route: 042
     Dates: start: 20060513, end: 20060514
  21. UNSPECIFIED DRUG [Concomitant]
     Dosage: DRUG REPORTED AS KAEXELATE
     Route: 048
     Dates: start: 20060513
  22. PREDNISONE TAB [Concomitant]
     Dates: start: 20050822
  23. PREDNISONE TAB [Concomitant]
     Dates: start: 20060510
  24. NEUPOGEN [Concomitant]
     Dosage: DOSING AMOUNT: 300.
     Dates: start: 20051217, end: 20060306
  25. ALBUMIN (HUMAN) [Concomitant]
     Route: 042
     Dates: start: 20060512, end: 20060517
  26. EUCERIN [Concomitant]
     Dosage: ONE APPLICATION DAILY.
     Dates: start: 20060110, end: 20060227
  27. CLOBETASOL PROPIONATE [Concomitant]
     Dosage: ONE APPLICATION DAILY.
     Dates: start: 20060214, end: 20060524
  28. NORVASC [Concomitant]
     Dates: start: 20060504, end: 20060517
  29. AMBIEN [Concomitant]
     Dates: start: 20060227, end: 20060310
  30. PROCRIT [Concomitant]
     Dates: start: 20050928, end: 20060227

REACTIONS (4)
  - AUTOIMMUNE HEPATITIS [None]
  - HYPERKALAEMIA [None]
  - INFLUENZA [None]
  - RENAL FAILURE ACUTE [None]
